FAERS Safety Report 4955816-X (Version None)
Quarter: 2006Q1

REPORT INFORMATION
  Report Type: 
  Country: None (occurrence: None)
  Receive Date: 20060327
  Receipt Date: 20060327
  Transmission Date: 20060701
  Serious: Yes (Hospitalization)
  Sender: FDA-Public Use
  Company Number: None

PATIENT
  Age: 76 Year
  Sex: Male
  Weight: 146.4 kg

DRUGS (1)
  1. PROTONIX [Suspect]
     Indication: GASTROINTESTINAL HAEMORRHAGE
     Dosage: 80 MG BOLUS, 8 MG/HR IV DRIP
     Route: 040

REACTIONS (2)
  - EOSINOPHIL COUNT INCREASED [None]
  - LEUKOPENIA [None]
